FAERS Safety Report 5015486-1 (Version None)
Quarter: 2006Q2

REPORT INFORMATION
  Report Type: 
  Country: None (occurrence: None)
  Receive Date: 20060530
  Receipt Date: 20060530
  Transmission Date: 20061013
  Serious: Yes (Other)
  Sender: FDA-Public Use
  Company Number: None

PATIENT
  Age: 44 Year
  Sex: Male
  Weight: 78.9 kg

DRUGS (10)
  1. GABAPENTIN [Suspect]
  2. THIAMINE HCL [Concomitant]
  3. MENTHOL 10%/METHYL SALICYLATE [Concomitant]
  4. MULTI-VITAMIN [Concomitant]
  5. ZOLPIDEM TARTRATE [Concomitant]
  6. VARDENAFIL HCL [Concomitant]
  7. GABAPENTIN [Concomitant]
  8. CETYLPYRDINIUM 0.0%/MENTHOL [Concomitant]
  9. CLOBETASOL PROPIONATE [Concomitant]
  10. IBUPROFEN [Concomitant]

REACTIONS (2)
  - DIARRHOEA [None]
  - DIZZINESS [None]
